FAERS Safety Report 7934646-0 (Version None)
Quarter: 2011Q4

REPORT INFORMATION
  Report Type: 
  Country: None (occurrence: None)
  Receive Date: 20111117
  Receipt Date: 20111113
  Transmission Date: 20120403
  Serious: Yes (Hospitalization)
  Sender: FDA-Public Use
  Company Number: 2011SP053344

PATIENT
  Sex: Female

DRUGS (1)
  1. NUVARING [Suspect]
     Indication: PRODUCT USED FOR UNKNOWN INDICATION
     Dosage: ;VAG
     Route: 067
     Dates: start: 20111101

REACTIONS (3)
  - CYST [None]
  - OOPHORITIS [None]
  - METRORRHAGIA [None]
